FAERS Safety Report 4455229-3 (Version None)
Quarter: 2004Q3

REPORT INFORMATION
  Report Type: 
  Country: None (occurrence: None)
  Receive Date: 20040830
  Receipt Date: 20040413
  Transmission Date: 20050211
  Serious: No
  Sender: FDA-Public Use
  Company Number: 205880

PATIENT
  Age: 41 Year
  Sex: Female

DRUGS (7)
  1. XOLAIR [Suspect]
     Indication: ASTHMA
     Dosage: SUBCUTANEOUS
     Route: 058
     Dates: start: 20040412
  2. PULMICORT [Concomitant]
  3. CLARINEX [Concomitant]
  4. XOPENEX [Concomitant]
  5. SINGULAIR [Concomitant]
  6. AZMACORT (TRIAMCINOLONE ACETATE) [Concomitant]
  7. ALLERGY SHOTS (ALLERGENIC EXTRACTS) [Concomitant]

REACTIONS (1)
  - MIGRAINE [None]
